FAERS Safety Report 19274903 (Version 1)
Quarter: 2021Q2

REPORT INFORMATION
  Report Type: Spontaneous
  Country: CH (occurrence: CH)
  Receive Date: 20210519
  Receipt Date: 20210519
  Transmission Date: 20210717
  Serious: Yes (Other)
  Sender: FDA-Public Use
  Company Number: CH-PFIZER INC-2021505197

PATIENT
  Age: 82 Year
  Sex: Female
  Weight: 42 kg

DRUGS (14)
  1. ZALDIAR [Concomitant]
     Active Substance: ACETAMINOPHEN\TRAMADOL HYDROCHLORIDE
     Dosage: UNK, AS NEEDED
     Route: 048
  2. DICETEL [Concomitant]
     Active Substance: PINAVERIUM BROMIDE
     Dosage: UNK, AS NEEDED
     Route: 048
  3. XELODA [Suspect]
     Active Substance: CAPECITABINE
     Dosage: 1500 MG, 1X/DAY
     Route: 048
     Dates: start: 20210330
  4. FASLODEX [Suspect]
     Active Substance: FULVESTRANT
     Indication: BREAST CANCER METASTATIC
     Dosage: DOSAGE NOT SPECIFIED
     Route: 030
     Dates: start: 20200204, end: 20210308
  5. IBRANCE [Suspect]
     Active Substance: PALBOCICLIB
     Dosage: 100 MG, DAILY, EXACT START AND END DATES OF TREATMENT AT THIS DOSE NOT KNOWN (BETWEEN 2020 AND 2021)
     Route: 048
  6. CONDROSULF [Concomitant]
     Active Substance: SODIUM CHONDROITIN SULFATE
     Dosage: 800 MG, AS NEEDED
     Route: 048
  7. CALCIMAGON D3 [Concomitant]
     Active Substance: CALCIUM\CHOLECALCIFEROL
     Dosage: LONG TERM
     Route: 048
  8. XELODA [Suspect]
     Active Substance: CAPECITABINE
     Indication: BREAST CANCER METASTATIC
     Dosage: 1500 MG, 1X/DAY
     Route: 048
     Dates: start: 20210319, end: 20210324
  9. ASPIRIN CARDIO [Concomitant]
     Active Substance: ASPIRIN
     Dosage: LONG TERM, 100MG 1X/DAY
     Route: 048
  10. ALDACTONE [Concomitant]
     Active Substance: SPIRONOLACTONE
     Dosage: LONG TERM, 50MG 2X/DAY
     Route: 048
  11. VOLTAREN DOLO FORTE [Concomitant]
     Dosage: UNK
  12. IBRANCE [Suspect]
     Active Substance: PALBOCICLIB
     Dosage: 75 MG, DAILY
     Route: 048
     Dates: end: 20210308
  13. ALENDRON MEPHA [Concomitant]
     Active Substance: ALENDRONATE SODIUM
     Dosage: LONG TERM, 70MG 1X/DAY
     Route: 048
  14. IBRANCE [Suspect]
     Active Substance: PALBOCICLIB
     Indication: BREAST CANCER METASTATIC
     Dosage: 125 MG, DAILY
     Route: 048
     Dates: start: 20200504

REACTIONS (7)
  - Colitis [Recovered/Resolved]
  - Ascites [Unknown]
  - Thrombocytopenia [Unknown]
  - Malnutrition [Unknown]
  - Bone marrow infiltration [Unknown]
  - Neoplasm progression [Unknown]
  - Anaemia [Unknown]

NARRATIVE: CASE EVENT DATE: 20210315
